FAERS Safety Report 7875246-0 (Version None)
Quarter: 2011Q4

REPORT INFORMATION
  Report Type: 
  Country: None (occurrence: None)
  Receive Date: 20111031
  Receipt Date: 20111018
  Transmission Date: 20120403
  Serious: Yes (Hospitalization)
  Sender: FDA-Public Use
  Company Number: NL-MEDIMMUNE-MEDI-0013760

PATIENT
  Sex: Male
  Weight: 5.99 kg

DRUGS (3)
  1. SYNAGIS [Suspect]
     Route: 030
     Dates: start: 20111018
  2. ATROVENT [Concomitant]
  3. SYNAGIS [Suspect]
     Indication: TRACHEOSTOMY
     Route: 030
     Dates: start: 20110920, end: 20110920

REACTIONS (5)
  - NASOPHARYNGITIS [None]
  - UPPER RESPIRATORY TRACT INFECTION [None]
  - INCREASED BRONCHIAL SECRETION [None]
  - ASTHMA [None]
  - VOMITING [None]
